FAERS Safety Report 9759861 (Version 1)
Quarter: 2013Q4

REPORT INFORMATION
  Report Type: Spontaneous
  Country: US (occurrence: US)
  Receive Date: 20131216
  Receipt Date: 20131216
  Transmission Date: 20140711
  Serious: No
  Sender: FDA-Public Use
  Company Number: US-TEVA-448802USA

PATIENT
  Sex: 0

DRUGS (2)
  1. COPAXONE [Suspect]
  2. AUBAGIO [Suspect]

REACTIONS (2)
  - Inappropriate schedule of drug administration [Unknown]
  - Adverse event [Unknown]
